FAERS Safety Report 6694913-8 (Version None)
Quarter: 2010Q2

REPORT INFORMATION
  Report Type: 
  Country: None (occurrence: None)
  Receive Date: 20100423
  Receipt Date: 20100422
  Transmission Date: 20101027
  Serious: Yes (Death, Hospitalization)
  Sender: FDA-Public Use
  Company Number: US-CEPHALON-2010001832

PATIENT
  Age: 72 Year
  Sex: Male

DRUGS (3)
  1. TREANDA [Suspect]
     Indication: CHRONIC LYMPHOCYTIC LEUKAEMIA
     Dates: start: 20100201
  2. ALLOPURINOL [Suspect]
  3. RITUXAN [Concomitant]
     Indication: CHRONIC LYMPHOCYTIC LEUKAEMIA

REACTIONS (2)
  - CARDIAC DISORDER [None]
  - TUMOUR LYSIS SYNDROME [None]
